FAERS Safety Report 20829647 (Version 4)
Quarter: 2022Q2

REPORT INFORMATION
  Report Type: Spontaneous
  Country: HR (occurrence: HR)
  Receive Date: 20220513
  Receipt Date: 20220610
  Transmission Date: 20220721
  Serious: Yes (Hospitalization, Other)
  Sender: FDA-Public Use
  Company Number: HR-NOVARTISPH-NVSC2022HR106841

PATIENT
  Age: 57 Year
  Sex: Female
  Weight: 80 kg

DRUGS (11)
  1. ATORVASTATIN [Suspect]
     Active Substance: ATORVASTATIN
     Indication: Product used for unknown indication
     Dosage: 20 MG
     Route: 065
  2. BISOPROLOL [Suspect]
     Active Substance: BISOPROLOL
     Indication: Product used for unknown indication
     Dosage: 2.5 MG
     Route: 065
  3. BISOPROLOL [Suspect]
     Active Substance: BISOPROLOL
     Dosage: UNK
     Route: 065
  4. AMLODIPINE BESYLATE [Suspect]
     Active Substance: AMLODIPINE BESYLATE
     Indication: Product used for unknown indication
     Dosage: 5 MG
     Route: 065
  5. AMLODIPINE [Suspect]
     Active Substance: AMLODIPINE BESYLATE
     Indication: Product used for unknown indication
     Dosage: 5 MG
     Route: 065
  6. PERINDOPRIL [Suspect]
     Active Substance: PERINDOPRIL
     Indication: Product used for unknown indication
     Dosage: 5 MG
     Route: 065
  7. PROPAFENONE [Suspect]
     Active Substance: PROPAFENONE
     Indication: Product used for unknown indication
     Dosage: 450 MG, QD (450 MG, (150 MG (3X/DAY))
     Route: 065
  8. PROPAFENONE [Suspect]
     Active Substance: PROPAFENONE
     Dosage: 150 MG, (3 IN 1 DAY)
     Route: 065
  9. ELIQUIS [Suspect]
     Active Substance: APIXABAN
     Indication: Cerebrovascular accident prophylaxis
     Dosage: 10 MG, QD (5 MG, 2X/DAY)
     Route: 065
  10. ELIQUIS [Suspect]
     Active Substance: APIXABAN
     Dosage: 2 MG
     Route: 065
  11. ELIQUIS [Suspect]
     Active Substance: APIXABAN
     Dosage: 5 MG
     Route: 065

REACTIONS (1)
  - Arrhythmia [Recovered/Resolved]
